FAERS Safety Report 25827827 (Version 2)
Quarter: 2025Q4

REPORT INFORMATION
  Report Type: Spontaneous
  Country: US (occurrence: US)
  Receive Date: 20250921
  Receipt Date: 20251120
  Transmission Date: 20260118
  Serious: No
  Sender: TRAVERE THERAPEUTICS
  Company Number: US-TRAVERE-2025TVT01283

PATIENT
  Sex: Female

DRUGS (1)
  1. FILSPARI [Suspect]
     Active Substance: SPARSENTAN
     Indication: Focal segmental glomerulosclerosis
     Route: 048

REACTIONS (7)
  - Vomiting [Unknown]
  - Headache [None]
  - Decreased appetite [Unknown]
  - Hepatic pain [Unknown]
  - Nausea [Unknown]
  - Product use in unapproved indication [Unknown]
  - Treatment noncompliance [Unknown]
